FAERS Safety Report 9059622 (Version 1)
Quarter: 2013Q1

REPORT INFORMATION
  Report Type: Spontaneous
  Country: US (occurrence: US)
  Receive Date: 20130212
  Receipt Date: 20130212
  Transmission Date: 20140127
  Serious: No
  Sender: FDA-Public Use
  Company Number: US-009507513-1302USA001565

PATIENT
  Sex: Male

DRUGS (9)
  1. ASMANEX TWISTHALER [Suspect]
     Indication: EMPHYSEMA
     Dosage: 1 DF, QD
     Route: 055
     Dates: start: 20130202
  2. IPRATROPIUM BROMIDE [Concomitant]
  3. PLAVIX [Concomitant]
  4. LIPITOR [Concomitant]
  5. FLOMAX (TAMSULOSIN HYDROCHLORIDE) [Concomitant]
  6. NOVOLOG [Concomitant]
  7. PREDNISONE [Concomitant]
  8. SINGULAIR [Concomitant]
  9. ALENDRONATE SODIUM [Concomitant]

REACTIONS (3)
  - Dyspnoea [Not Recovered/Not Resolved]
  - Underdose [Unknown]
  - Product quality issue [Unknown]
